FAERS Safety Report 24199146 (Version 1)
Quarter: 2024Q3

REPORT INFORMATION
  Report Type: Spontaneous
  Country: CN (occurrence: None)
  Receive Date: 20240812
  Receipt Date: 20240812
  Transmission Date: 20241017
  Serious: Yes (Hospitalization, Other)
  Sender: ASTRAZENECA
  Company Number: 2024A181796

PATIENT
  Age: 16 Year
  Sex: Female
  Weight: 50 kg

DRUGS (2)
  1. SEROQUEL [Suspect]
     Active Substance: QUETIAPINE FUMARATE
     Indication: Affective disorder
     Dosage: FROM 29-JUL-2024, INCREASED TO 150 MG QN PO
     Route: 048
     Dates: start: 20240729
  2. SEROQUEL [Suspect]
     Active Substance: QUETIAPINE FUMARATE
     Indication: Affective disorder
     Dosage: ON 03-AUG-2024, REDUCED TO 100 MG QN PO
     Route: 048
     Dates: start: 20240803

REACTIONS (4)
  - Agitation [Recovering/Resolving]
  - Agitation [Recovering/Resolving]
  - Restlessness [Recovering/Resolving]
  - Anaesthesia dolorosa [Recovering/Resolving]

NARRATIVE: CASE EVENT DATE: 20240731
